FAERS Safety Report 9614911 (Version 1)
Quarter: 2013Q4

REPORT INFORMATION
  Report Type: Spontaneous
  Country: US (occurrence: US)
  Receive Date: 20131011
  Receipt Date: 20131011
  Transmission Date: 20140711
  Serious: Yes (Other)
  Sender: FDA-Public Use
  Company Number: US-ROCHE-1287860

PATIENT
  Sex: Male

DRUGS (4)
  1. PEGASYS [Suspect]
     Indication: CHRONIC HEPATITIS C
     Route: 065
     Dates: start: 2003
  2. RIBAVIRIN [Suspect]
     Indication: CHRONIC HEPATITIS C
     Route: 065
  3. MOTRIN [Concomitant]
  4. ASPIRIN [Concomitant]

REACTIONS (1)
  - Femur fracture [Unknown]
